FAERS Safety Report 18439564 (Version 1)
Quarter: 2020Q4

REPORT INFORMATION
  Report Type: Spontaneous
  Country: US (occurrence: US)
  Receive Date: 20201028
  Receipt Date: 20201028
  Transmission Date: 20210114
  Serious: No
  Sender: FDA-Public Use
  Company Number: US-EISAI MEDICAL RESEARCH-EC-2020-082607

PATIENT
  Age: 32 Year
  Sex: Male

DRUGS (1)
  1. DAYVIGO [Suspect]
     Active Substance: LEMBOREXANT
     Indication: THYROID DISORDER
     Route: 048
     Dates: start: 20201016

REACTIONS (2)
  - Dysarthria [Unknown]
  - Lethargy [Unknown]

NARRATIVE: CASE EVENT DATE: 20201022
